FAERS Safety Report 23442199 (Version 1)
Quarter: 2024Q1

REPORT INFORMATION
  Report Type: Spontaneous
  Country: US (occurrence: US)
  Receive Date: 20240125
  Receipt Date: 20240125
  Transmission Date: 20240409
  Serious: Yes (Life-Threatening, Hospitalization, Other)
  Sender: FDA-Public Use
  Company Number: US-TORRENT-00013378

PATIENT
  Age: 79 Year
  Sex: Female

DRUGS (1)
  1. OLMESARTAN [Suspect]
     Active Substance: OLMESARTAN
     Indication: Hypertension
     Dosage: UNKNOWN
     Route: 065

REACTIONS (5)
  - Enteritis [Recovered/Resolved]
  - Hypotension [Recovered/Resolved]
  - Generalised oedema [Recovered/Resolved]
  - Metabolic encephalopathy [Recovered/Resolved]
  - Weight decreased [Recovered/Resolved]
